FAERS Safety Report 8874302 (Version 2)
Quarter: 2012Q4

REPORT INFORMATION
  Report Type: 
  Country: CH (occurrence: CH)
  Receive Date: 20121031
  Receipt Date: 20121112
  Transmission Date: 20130627
  Serious: Yes (Hospitalization)
  Sender: FDA-Public Use
  Company Number: CH-BIOGENIDEC-2012BI048951

PATIENT
  Age: 63 Year
  Sex: Female

DRUGS (3)
  1. AVONEX [Suspect]
     Indication: MULTIPLE SCLEROSIS
     Route: 030
     Dates: start: 20090610, end: 201208
  2. TRAZODONE (TRITTICO) [Concomitant]
     Indication: DEPRESSION
     Route: 048
     Dates: start: 201204, end: 20120818
  3. OXYDODON + NALOXON (TARGIN) [Concomitant]
     Indication: PAIN
     Route: 048
     Dates: start: 20120427, end: 20120818

REACTIONS (5)
  - Disorientation [Recovered/Resolved]
  - Amnesia [Not Recovered/Not Resolved]
  - Muscle contractions involuntary [Recovered/Resolved]
  - Confusional state [Recovered/Resolved]
  - Influenza [Unknown]
